FAERS Safety Report 9730365 (Version 11)
Quarter: 2018Q3

REPORT INFORMATION
  Report Type: Report from Study
  Country: FR (occurrence: FR)
  Receive Date: 20131204
  Receipt Date: 20180903
  Transmission Date: 20181010
  Serious: Yes (Hospitalization)
  Sender: FDA-Public Use
  Company Number: FR-ROCHE-1297097

PATIENT
  Age: 80 Year
  Sex: Female

DRUGS (27)
  1. POLARAMINE [Concomitant]
     Active Substance: DEXCHLORPHENIRAMINE MALEATE
     Route: 065
     Dates: start: 20130626, end: 20130626
  2. ERYTHROMYCINE [Concomitant]
     Active Substance: ERYTHROMYCIN
     Route: 065
     Dates: start: 20130612, end: 20130625
  3. AZANTAC [Concomitant]
     Active Substance: RANITIDINE HYDROCHLORIDE
     Route: 065
     Dates: start: 20130717, end: 20130717
  4. TAHOR [Concomitant]
     Active Substance: ATORVASTATIN CALCIUM
     Route: 065
     Dates: start: 20131023
  5. FEMARA [Concomitant]
     Active Substance: LETROZOLE
     Route: 065
     Dates: start: 20140826
  6. PERTUZUMAB. [Suspect]
     Active Substance: PERTUZUMAB
     Dosage: LOADING DOSE AS PER PROTOCOL
     Route: 042
     Dates: start: 20130604, end: 20130604
  7. TRASTUZUMAB. [Suspect]
     Active Substance: TRASTUZUMAB
     Dosage: LOADING DOSE ON C1D1
     Route: 042
     Dates: start: 20130605, end: 20130605
  8. POLARAMINE [Concomitant]
     Active Substance: DEXCHLORPHENIRAMINE MALEATE
     Route: 065
     Dates: start: 20130605, end: 20130605
  9. POLARAMINE [Concomitant]
     Active Substance: DEXCHLORPHENIRAMINE MALEATE
     Route: 065
     Dates: start: 20130717, end: 20130717
  10. LOPERAMIDE [Concomitant]
     Active Substance: LOPERAMIDE
     Indication: DIARRHOEA
     Dosage: 2MG/STOOL
     Route: 065
     Dates: start: 20130626, end: 20130809
  11. AZANTAC [Concomitant]
     Active Substance: RANITIDINE HYDROCHLORIDE
     Route: 065
     Dates: start: 20130626, end: 20130626
  12. PERINDOPRIL [Concomitant]
     Active Substance: PERINDOPRIL
     Route: 065
     Dates: start: 20140127
  13. TRASTUZUMAB. [Suspect]
     Active Substance: TRASTUZUMAB
     Indication: HER-2 POSITIVE BREAST CANCER
     Dosage: LAST DOSE PRIOR TO SAE 8/OCT/2013, MAINTAINANCE DOSE
     Route: 042
  14. AUGMENTIN [Concomitant]
     Active Substance: AMOXICILLIN\CLAVULANATE POTASSIUM
     Route: 065
     Dates: start: 20130807, end: 20130827
  15. PACLITAXEL. [Suspect]
     Active Substance: PACLITAXEL
     Indication: HER-2 POSITIVE BREAST CANCER
     Dosage: LAST DOSE PRIOR TO SAE: 17/SEP/2013
     Route: 042
     Dates: start: 20130605
  16. METHYLPREDNISOLONE. [Concomitant]
     Active Substance: METHYLPREDNISOLONE
     Route: 065
     Dates: start: 20130605, end: 20130605
  17. KARDEGIC [Concomitant]
     Active Substance: ASPIRIN DL-LYSINE
     Route: 065
     Dates: start: 20131023
  18. METHYLPREDNISOLONE. [Concomitant]
     Active Substance: METHYLPREDNISOLONE
     Route: 065
     Dates: start: 20130626, end: 20130626
  19. TRIFLUCAN [Concomitant]
     Active Substance: FLUCONAZOLE
     Dosage: 50MG/DAY
     Route: 065
     Dates: start: 20130903, end: 20130910
  20. ZOPICLONE [Concomitant]
     Active Substance: ZOPICLONE
     Dosage: 1/2 TABLETS/PER DAY
     Route: 065
  21. PANTOPRAZOLE [Concomitant]
     Active Substance: PANTOPRAZOLE
     Route: 065
     Dates: start: 20140127
  22. PERTUZUMAB. [Suspect]
     Active Substance: PERTUZUMAB
     Indication: HER-2 POSITIVE BREAST CANCER
     Dosage: LAST DOSE PRIOR TO SAE 8/OCT/2013, MAINTAINANCE DOSE
     Route: 042
  23. CORTANCYL [Concomitant]
     Active Substance: PREDNISONE
     Dosage: 4 MG/DAY
     Route: 065
     Dates: start: 201104
  24. AZANTAC [Concomitant]
     Active Substance: RANITIDINE HYDROCHLORIDE
     Route: 065
     Dates: start: 20130605, end: 20130605
  25. CARDENSIEL [Concomitant]
     Active Substance: BISOPROLOL FUMARATE
     Route: 065
     Dates: start: 20140805
  26. METHYLPREDNISOLONE. [Concomitant]
     Active Substance: METHYLPREDNISOLONE
     Route: 065
     Dates: start: 20130717, end: 20130717
  27. TRIFLUCAN [Concomitant]
     Active Substance: FLUCONAZOLE
     Dosage: 200MG/DAY
     Route: 065
     Dates: start: 20130911, end: 20130923

REACTIONS (1)
  - Cerebral infarction [Recovered/Resolved]

NARRATIVE: CASE EVENT DATE: 20131015
